FAERS Safety Report 11321586 (Version 9)
Quarter: 2020Q1

REPORT INFORMATION
  Report Type: Spontaneous
  Country: US (occurrence: US)
  Receive Date: 20150729
  Receipt Date: 20200304
  Transmission Date: 20200409
  Serious: Yes (Other)
  Sender: FDA-Public Use
  Company Number: US-PFIZER INC-2015250621

PATIENT
  Age: 62 Year
  Sex: Female
  Weight: 89.34 kg

DRUGS (5)
  1. SOMAVERT [Suspect]
     Active Substance: PEGVISOMANT
     Dosage: 30 MG, DAILY DOSE
     Dates: start: 20100409
  2. SOMAVERT [Suspect]
     Active Substance: PEGVISOMANT
     Indication: ACROMEGALY
     Dosage: 60 MG, DAILY
     Route: 058
     Dates: start: 20100409
  3. SOMAVERT [Suspect]
     Active Substance: PEGVISOMANT
     Dosage: 60 MG, DAILY
     Route: 058
     Dates: start: 2011
  4. SOMAVERT [Suspect]
     Active Substance: PEGVISOMANT
     Indication: HYPOTHALAMO-PITUITARY DISORDER
     Dosage: 30 MG, UNK
     Route: 058
     Dates: start: 201003
  5. SOMAVERT [Suspect]
     Active Substance: PEGVISOMANT
     Dosage: 30 MG THREE DAYS PER WEEK, THEN 60 MG 4 DAYS PER WEEK
     Route: 058
     Dates: start: 201507

REACTIONS (9)
  - Pituitary enlargement [Unknown]
  - Injection site reaction [Recovered/Resolved]
  - Injection site pain [Unknown]
  - Off label use [Unknown]
  - Skin infection [Unknown]
  - Brain neoplasm [Unknown]
  - Weight decreased [Unknown]
  - Product complaint [Unknown]
  - Intentional dose omission [Unknown]
